FAERS Safety Report 6411945-5 (Version None)
Quarter: 2009Q4

REPORT INFORMATION
  Report Type: 
  Country: None (occurrence: None)
  Receive Date: 20091023
  Receipt Date: 20091016
  Transmission Date: 20100525
  Serious: Yes (Other)
  Sender: FDA-Public Use
  Company Number: US-JNJFOC-20091006344

PATIENT
  Sex: Female
  Weight: 136.08 kg

DRUGS (8)
  1. DURAGESIC-100 [Suspect]
     Indication: INTERVERTEBRAL DISC PROTRUSION
     Route: 062
     Dates: start: 20080101, end: 20091001
  2. LASIX [Concomitant]
     Indication: OEDEMA
     Route: 048
  3. POTASSIUM CHLORIDE [Concomitant]
     Route: 048
  4. POTASSIUM CHLORIDE [Concomitant]
     Indication: BLOOD POTASSIUM DECREASED
     Route: 048
  5. VALIUM [Concomitant]
     Indication: ANXIETY
     Route: 048
  6. XANAX [Concomitant]
     Indication: ANXIETY
     Route: 048
  7. VYVANSE [Concomitant]
     Route: 048
  8. OXYCODONE [Concomitant]
     Indication: PAIN
     Route: 048

REACTIONS (3)
  - BLOOD POTASSIUM DECREASED [None]
  - DEPRESSION [None]
  - DRUG DOSE OMISSION [None]
